FAERS Safety Report 5289775-X (Version None)
Quarter: 2007Q2

REPORT INFORMATION
  Report Type: 
  Country: None (occurrence: None)
  Receive Date: 20070406
  Receipt Date: 20070330
  Transmission Date: 20071010
  Serious: Yes (Death, Other)
  Sender: FDA-Public Use
  Company Number: BE-ABBOTT-06P-013-0350391-00

PATIENT
  Sex: Male

DRUGS (9)
  1. DEPAKENE [Suspect]
     Indication: EPILEPSY
     Route: 048
     Dates: start: 20050301
  2. DEPAKENE [Suspect]
     Route: 048
     Dates: end: 20050301
  3. TICLOPIDINE HYDROCHLORIDE [Concomitant]
     Indication: CARDIOMYOPATHY
     Route: 048
     Dates: start: 20040601
  4. PERINDOPRIL ERBUMINE [Concomitant]
     Indication: CARDIOMYOPATHY
     Route: 048
     Dates: start: 20040601
  5. BISOPROLOL [Concomitant]
     Indication: CARDIOMYOPATHY
     Route: 048
     Dates: start: 20040601
  6. FENOFIBRATE [Concomitant]
     Indication: DRUG USE FOR UNKNOWN INDICATION
     Route: 048
     Dates: start: 20040601
  7. METFORMIN HYDROCHLORIDE [Concomitant]
     Indication: DIABETES MELLITUS
     Route: 048
     Dates: start: 20050501
  8. FLUVOXAMINE MALEATE [Concomitant]
     Indication: DEPRESSION
     Route: 065
     Dates: start: 20051101
  9. LEVETIRACETAM [Concomitant]
     Indication: EPILEPSY
     Route: 048
     Dates: start: 20060701

REACTIONS (4)
  - CONFUSIONAL STATE [None]
  - HYPERAMMONAEMIA [None]
  - HYPERCALCAEMIA [None]
  - MULTIPLE MYELOMA [None]
